FAERS Safety Report 10488104 (Version 3)
Quarter: 2015Q3

REPORT INFORMATION
  Report Type: Report from Study
  Country: DE (occurrence: DE)
  Receive Date: 20141002
  Receipt Date: 20150903
  Transmission Date: 20151125
  Serious: Yes (Disabling)
  Sender: FDA-Public Use
  Company Number: DE-ROCHE-1461509

PATIENT
  Age: 58 Year
  Sex: Female
  Weight: 72 kg

DRUGS (4)
  1. TRASTUZUMAB [Suspect]
     Active Substance: TRASTUZUMAB
     Indication: HER-2 POSITIVE BREAST CANCER
     Route: 042
     Dates: start: 20120515, end: 20120515
  2. TRASTUZUMAB [Suspect]
     Active Substance: TRASTUZUMAB
     Route: 042
     Dates: start: 20130115, end: 20130205
  3. VINORELBINE [Concomitant]
     Active Substance: VINORELBINE\VINORELBINE TARTRATE
     Indication: BREAST CANCER
     Dosage: 44-45 MG
     Route: 065
     Dates: start: 20120515, end: 20130305
  4. CIPROBAY [Concomitant]
     Active Substance: CIPROFLOXACIN
     Indication: OROPHARYNGEAL PAIN
     Route: 065
     Dates: start: 20121123, end: 201211

REACTIONS (1)
  - Mitral valve incompetence [Recovering/Resolving]

NARRATIVE: CASE EVENT DATE: 20130212
